FAERS Safety Report 7990796-4 (Version None)
Quarter: 2011Q4

REPORT INFORMATION
  Report Type: 
  Country: None (occurrence: None)
  Receive Date: 20111215
  Receipt Date: 20111205
  Transmission Date: 20120403
  Serious: Yes (Hospitalization)
  Sender: FDA-Public Use
  Company Number: TCI2011A06450

PATIENT
  Age: 66 Year
  Sex: Male

DRUGS (2)
  1. ACTOS [Suspect]
     Indication: DIABETES MELLITUS
     Dosage: 30 MG (30 MG, 1 IN 1 D)
     Route: 048
     Dates: start: 20070401, end: 20110601
  2. AMARYL [Concomitant]

REACTIONS (2)
  - BLADDER CANCER [None]
  - HAEMATURIA [None]
